FAERS Safety Report 4793410-4 (Version None)
Quarter: 2005Q4

REPORT INFORMATION
  Report Type: 
  Country: None (occurrence: None)
  Receive Date: 20051011
  Receipt Date: 20050927
  Transmission Date: 20060501
  Serious: Yes (Death, Congenital Anomaly)
  Sender: FDA-Public Use
  Company Number: FR-JNJFOC-20051001334

PATIENT

DRUGS (8)
  1. TOPALGIC [Suspect]
     Indication: DRUG USE FOR UNKNOWN INDICATION
     Route: 064
  2. DI-ANTALVIC [Suspect]
     Route: 064
  3. DI-ANTALVIC [Suspect]
     Indication: DRUG USE FOR UNKNOWN INDICATION
     Route: 064
  4. IMOVANE [Suspect]
     Indication: DRUG USE FOR UNKNOWN INDICATION
     Route: 064
  5. CLARADOL [Suspect]
     Indication: DRUG USE FOR UNKNOWN INDICATION
     Route: 064
  6. LEXOMIL [Suspect]
     Indication: DRUG USE FOR UNKNOWN INDICATION
     Route: 064
  7. MOPRAL [Suspect]
     Indication: DRUG USE FOR UNKNOWN INDICATION
     Route: 064
  8. PROZAC [Suspect]
     Indication: DRUG USE FOR UNKNOWN INDICATION
     Route: 064

REACTIONS (12)
  - ABORTION [None]
  - ATRIAL SEPTAL DEFECT [None]
  - CONGENITAL CENTRAL NERVOUS SYSTEM ANOMALY [None]
  - CONGENITAL THYMUS ABSENCE [None]
  - FOETAL CYSTIC HYGROMA [None]
  - HYPERTELORISM OF ORBIT [None]
  - MENINGEAL DISORDER [None]
  - OESOPHAGEAL ATRESIA [None]
  - PHALANGEAL AGENESIS [None]
  - PULMONARY ARTERY STENOSIS CONGENITAL [None]
  - SINGLE UMBILICAL ARTERY [None]
  - VASCULAR ANOMALY [None]
